FAERS Safety Report 6505103-3 (Version None)
Quarter: 2009Q4

REPORT INFORMATION
  Report Type: 
  Country: None (occurrence: None)
  Receive Date: 20091218
  Receipt Date: 20091207
  Transmission Date: 20100525
  Serious: No
  Sender: FDA-Public Use
  Company Number: PHHY2009DE21907

PATIENT
  Sex: Male
  Weight: 88 kg

DRUGS (2)
  1. LEPONEX [Suspect]
     Indication: SCHIZOPHRENIA
     Dosage: 150 MG/DAY
     Route: 048
     Dates: start: 19990101
  2. LEPONEX [Suspect]
     Dosage: 100 MG/DAY
     Route: 048

REACTIONS (3)
  - CYSTITIS INTERSTITIAL [None]
  - DYSURIA [None]
  - HAEMATURIA [None]
